FAERS Safety Report 9818840 (Version 1)
Quarter: 2014Q1

REPORT INFORMATION
  Report Type: Spontaneous
  Country: US (occurrence: None)
  Receive Date: 20140114
  Receipt Date: 20140114
  Transmission Date: 20141002
  Serious: Yes (Hospitalization, Disabling)
  Sender: FDA-Public Use
  Company Number: None

PATIENT
  Age: 61 Year
  Sex: Female
  Weight: 49 kg

DRUGS (2)
  1. ENOXAPARIN 60 MG UNKNOWN [Suspect]
     Route: 058
  2. COUMADIN 2 MG UNKNOWN [Suspect]
     Route: 048

REACTIONS (1)
  - Subdural haemorrhage [None]
